FAERS Safety Report 18200323 (Version 5)
Quarter: 2020Q4

REPORT INFORMATION
  Report Type: Spontaneous
  Country: JP (occurrence: JP)
  Receive Date: 20200827
  Receipt Date: 20201123
  Transmission Date: 20210113
  Serious: Yes (Death, Other)
  Sender: FDA-Public Use
  Company Number: JP-BRISTOL-MYERS SQUIBB COMPANY-BMS-2020-069512

PATIENT
  Age: 76 Year
  Sex: Male
  Weight: 74.3 kg

DRUGS (5)
  1. OPDIVO [Suspect]
     Active Substance: NIVOLUMAB
     Dosage: 210 MILLIGRAM
     Route: 041
     Dates: start: 20171110, end: 20180427
  2. OPDIVO [Suspect]
     Active Substance: NIVOLUMAB
     Dosage: 190 MILLIGRAM
     Route: 041
     Dates: start: 20180511, end: 20180831
  3. OPDIVO [Suspect]
     Active Substance: NIVOLUMAB
     Indication: METASTATIC RENAL CELL CARCINOMA
     Dosage: 220 MILLIGRAM
     Route: 041
     Dates: start: 20170929, end: 20170929
  4. OPDIVO [Suspect]
     Active Substance: NIVOLUMAB
     Dosage: 200 MILLIGRAM
     Route: 041
     Dates: start: 20171013, end: 20171027
  5. OPDIVO [Suspect]
     Active Substance: NIVOLUMAB
     Dosage: 240 MILLIGRAM
     Route: 041
     Dates: start: 20180914, end: 20181109

REACTIONS (2)
  - Hepatic encephalopathy [Fatal]
  - Hepatocellular carcinoma [Fatal]

NARRATIVE: CASE EVENT DATE: 20181120
